FAERS Safety Report 12365456 (Version 1)
Quarter: 2016Q2

REPORT INFORMATION
  Report Type: Spontaneous
  Country: US (occurrence: None)
  Receive Date: 20160512
  Receipt Date: 20160512
  Transmission Date: 20160815
  Serious: Yes (Disabling)
  Sender: FDA-Public Use
  Company Number: None

PATIENT
  Age: 11 Month
  Sex: Male
  Weight: 10.89 kg

DRUGS (3)
  1. LEVETIRACETAM. [Concomitant]
     Active Substance: LEVETIRACETAM
  2. MEDROXYPROGESTERONE CAPROATE INJ [Suspect]
     Active Substance: MEDROXYPROGESTERONE CAPROATE
     Indication: PREMATURE LABOUR
     Dosage: INTO THE MUSCLE
  3. MEDROXYPROGESTERONE CAPROATE INJ [Suspect]
     Active Substance: MEDROXYPROGESTERONE CAPROATE
     Indication: PROPHYLAXIS
     Dosage: INTO THE MUSCLE

REACTIONS (3)
  - Maternal drugs affecting foetus [None]
  - Seizure [None]
  - Maternal exposure during pregnancy [None]

NARRATIVE: CASE EVENT DATE: 20160115
